FAERS Safety Report 8498304-9 (Version None)
Quarter: 2012Q3

REPORT INFORMATION
  Report Type: 
  Country: None (occurrence: None)
  Receive Date: 20120709
  Receipt Date: 20120621
  Transmission Date: 20120928
  Serious: No
  Sender: FDA-Public Use
  Company Number: US-AMGEN-USASP2012037720

PATIENT
  Age: 52 Year
  Sex: Female

DRUGS (1)
  1. ENBREL [Suspect]
     Indication: PRODUCT USED FOR UNKNOWN INDICATION
     Dosage: 50 MG, QWK
     Dates: start: 20060101, end: 20120602

REACTIONS (10)
  - PAIN [None]
  - MOBILITY DECREASED [None]
  - ACTIVITIES OF DAILY LIVING IMPAIRED [None]
  - FATIGUE [None]
  - DYSSTASIA [None]
  - SPEECH DISORDER [None]
  - VISUAL ACUITY REDUCED [None]
  - MALAISE [None]
  - ARTHRALGIA [None]
  - DIARRHOEA [None]
